FAERS Safety Report 16789764 (Version 1)
Quarter: 2019Q3

REPORT INFORMATION
  Report Type: Other
  Country: FR (occurrence: FR)
  Receive Date: 20190910
  Receipt Date: 20190910
  Transmission Date: 20191005
  Serious: Yes (Life-Threatening, Other)
  Sender: FDA-Public Use
  Company Number: FR-ASTELLAS-2019US035622

PATIENT
  Age: 11 Year
  Sex: Male
  Weight: 40 kg

DRUGS (2)
  1. ANCOTIL [Suspect]
     Active Substance: FLUCYTOSINE
     Indication: SYSTEMIC CANDIDA
     Dosage: 50 MG/KG, ONCE DAILY (TOUTES LES 6H)
     Route: 042
     Dates: start: 20190809, end: 20190814
  2. AMBISOME [Suspect]
     Active Substance: AMPHOTERICIN B
     Indication: SYSTEMIC CANDIDA
     Route: 042
     Dates: start: 20190809

REACTIONS (2)
  - Cardiac failure [Not Recovered/Not Resolved]
  - Overdose [Recovering/Resolving]

NARRATIVE: CASE EVENT DATE: 201908
